FAERS Safety Report 15688291 (Version 1)
Quarter: 2018Q4

REPORT INFORMATION
  Report Type: Spontaneous
  Country: BR (occurrence: BR)
  Receive Date: 20181205
  Receipt Date: 20181205
  Transmission Date: 20190205
  Serious: Yes (Other)
  Sender: FDA-Public Use
  Company Number: BR-ROCHE-2222125

PATIENT
  Sex: Female
  Weight: 45 kg

DRUGS (3)
  1. RIVOTRIL [Suspect]
     Active Substance: CLONAZEPAM
     Indication: ANXIETY
     Route: 065
  2. LORAX (BRAZIL) [Concomitant]
     Indication: CARDIAC DISORDER
     Dosage: 1 TABLET IN THE MORNING AND 1 TABLET AT NIGHT.
     Route: 048
     Dates: start: 2012
  3. VALIUM [Suspect]
     Active Substance: DIAZEPAM
     Indication: PRODUCT USED FOR UNKNOWN INDICATION
     Route: 065

REACTIONS (3)
  - Confusional state [Unknown]
  - Arrhythmia [Unknown]
  - Somnolence [Unknown]
